FAERS Safety Report 15507122 (Version 2)
Quarter: 2018Q4

REPORT INFORMATION
  Report Type: Spontaneous
  Country: KZ (occurrence: KZ)
  Receive Date: 20181016
  Receipt Date: 20181025
  Transmission Date: 20190205
  Serious: Yes (Death)
  Sender: FDA-Public Use
  Company Number: KZ-BAYER-2018-188945

PATIENT
  Sex: Female

DRUGS (5)
  1. CAPECITABINE. [Concomitant]
     Active Substance: CAPECITABINE
  2. OXALIPLATIN. [Concomitant]
     Active Substance: OXALIPLATIN
  3. STIVARGA [Suspect]
     Active Substance: REGORAFENIB
     Indication: RECTOSIGMOID CANCER STAGE IV
     Dosage: 160 MG, UNK
     Dates: start: 201605, end: 201609
  4. BEVACIZUMAB. [Concomitant]
     Active Substance: BEVACIZUMAB
  5. IRINOTECAN [Concomitant]
     Active Substance: IRINOTECAN

REACTIONS (4)
  - Colorectal cancer metastatic [Fatal]
  - Palmar-plantar erythrodysaesthesia syndrome [Recovered/Resolved]
  - Diarrhoea [Recovered/Resolved]
  - Fatigue [Recovered/Resolved]

NARRATIVE: CASE EVENT DATE: 20171108
